FAERS Safety Report 10276095 (Version 1)
Quarter: 2014Q3

REPORT INFORMATION
  Report Type: Other
  Country: GB (occurrence: GB)
  Receive Date: 20140703
  Receipt Date: 20140703
  Transmission Date: 20150326
  Serious: Yes (Other)
  Sender: FDA-Public Use
  Company Number: GB-GLENMARK GENERICS INC.-2014GMK010018

PATIENT
  Sex: Male

DRUGS (1)
  1. ROPINIROLE. [Suspect]
     Active Substance: ROPINIROLE
     Indication: PRODUCT USED FOR UNKNOWN INDICATION
     Dosage: UNK

REACTIONS (8)
  - Tremor [Unknown]
  - Asthenia [Unknown]
  - Hemiparesis [Unknown]
  - Hypoaesthesia [Unknown]
  - Muscle twitching [Unknown]
  - Muscle rigidity [Unknown]
  - Hypokinesia [Unknown]
  - Medication residue present [Unknown]
